FAERS Safety Report 9474934 (Version 1)
Quarter: 2013Q3

REPORT INFORMATION
  Report Type: Spontaneous
  Country: IN (occurrence: None)
  Receive Date: 20130822
  Receipt Date: 20130822
  Transmission Date: 20140515
  Serious: Yes (Hospitalization)
  Sender: FDA-Public Use
  Company Number: None

PATIENT
  Age: 62 Year
  Sex: Female
  Weight: 60 kg

DRUGS (1)
  1. NITROGLYCERIN [Suspect]
     Indication: HYPERTENSION
     Dosage: 8 MCG?3-6 HOURS, IV.

REACTIONS (2)
  - Blood pressure decreased [None]
  - Drug administration error [None]
